FAERS Safety Report 17006757 (Version 1)
Quarter: 2019Q4

REPORT INFORMATION
  Report Type: Spontaneous
  Country: US (occurrence: US)
  Receive Date: 20191107
  Receipt Date: 20191107
  Transmission Date: 20200122
  Serious: No
  Sender: FDA-Public Use
  Company Number: US-TARO-2019TAR00540

PATIENT
  Age: 76 Year
  Sex: Female
  Weight: 95.24 kg

DRUGS (6)
  1. MUPIROCIN OINTMENT USP 2% [Suspect]
     Active Substance: MUPIROCIN
     Indication: INFECTION
     Dosage: ^A SMALL AMOUNT^, 1X/DAY
     Route: 061
     Dates: start: 20190710, end: 20190712
  2. MUPIROCIN OINTMENT USP 2% [Suspect]
     Active Substance: MUPIROCIN
     Indication: INFECTION PROPHYLAXIS
  3. PEPCID [Concomitant]
     Active Substance: FAMOTIDINE
     Dosage: UNK
  4. METFORMIN [Concomitant]
     Active Substance: METFORMIN HYDROCHLORIDE
     Dosage: UNK
     Dates: start: 201905
  5. VITAMIN D [Concomitant]
     Active Substance: VITAMIN D NOS
  6. LISINOPRIL. [Concomitant]
     Active Substance: LISINOPRIL
     Dosage: UNK
     Dates: start: 2017

REACTIONS (11)
  - Glossodynia [Unknown]
  - Unevaluable event [Not Recovered/Not Resolved]
  - Feeling abnormal [Unknown]
  - Tongue discolouration [Not Recovered/Not Resolved]
  - Tongue blistering [Recovered/Resolved]
  - Application site discomfort [Not Recovered/Not Resolved]
  - Taste disorder [Not Recovered/Not Resolved]
  - Eye irritation [Unknown]
  - Expired product administered [Recovered/Resolved]
  - Inappropriate schedule of product administration [Recovered/Resolved]
  - Application site pain [Recovered/Resolved]

NARRATIVE: CASE EVENT DATE: 201907
